FAERS Safety Report 23089818 (Version 1)
Quarter: 2023Q4

REPORT INFORMATION
  Report Type: Report from Study
  Country: IT (occurrence: IT)
  Receive Date: 20231020
  Receipt Date: 20231020
  Transmission Date: 20240110
  Serious: Yes (Other)
  Sender: FDA-Public Use
  Company Number: IT-002147023-NVSC2023IT215125

PATIENT
  Age: 45 Year
  Sex: Male

DRUGS (1)
  1. IMATINIB [Suspect]
     Active Substance: IMATINIB
     Indication: Product used for unknown indication
     Dosage: UNK
     Route: 065
     Dates: start: 202009

REACTIONS (6)
  - Thrombocytopenia [Unknown]
  - Neutropenia [Unknown]
  - C-reactive protein increased [Unknown]
  - Fluid retention [Unknown]
  - Bone pain [Unknown]
  - Anaemia [Unknown]
